FAERS Safety Report 22233238 (Version 1)
Quarter: 2023Q2

REPORT INFORMATION
  Report Type: Spontaneous
  Country: US (occurrence: None)
  Receive Date: 20230419
  Receipt Date: 20230419
  Transmission Date: 20230722
  Serious: Yes (Other)
  Sender: FDA-Public Use
  Company Number: None

PATIENT
  Age: 3 Year
  Sex: Female
  Weight: 15.1 kg

DRUGS (3)
  1. ASPARLAS [Suspect]
     Active Substance: CALASPARGASE PEGOL-MKNL
     Indication: Leukaemia
     Dosage: OTHER FREQUENCY : ONCE;?
     Route: 042
  2. Vincistine 0.9 mg [Concomitant]
     Dates: start: 20230406, end: 20230406
  3. Methotrexate 12 mg IT [Concomitant]
     Dates: start: 20230406, end: 20230406

REACTIONS (2)
  - Drug hypersensitivity [None]
  - Infusion related reaction [None]

NARRATIVE: CASE EVENT DATE: 20230406
